FAERS Safety Report 9041075 (Version 1)
Quarter: 2013Q1

REPORT INFORMATION
  Report Type: Spontaneous
  Country: US (occurrence: None)
  Receive Date: 20130124
  Receipt Date: 20130124
  Transmission Date: 20140127
  Serious: No
  Sender: FDA-Public Use
  Company Number: None

PATIENT
  Age: 62 Year
  Sex: Male
  Weight: 74.84 kg

DRUGS (2)
  1. LEVOFLOXACIN NDC: 55111-0280-50 [Suspect]
     Indication: NEPHROLITHIASIS
     Dosage: 500 MG  1X  ORAL
     Route: 048
     Dates: start: 20121205, end: 20121207
  2. TAMSULOSIN NDC: 68382-0132-01 [Suspect]
     Indication: NEPHROLITHIASIS
     Dosage: 0.4 MG  1X  ORAL
     Route: 048
     Dates: start: 20121205, end: 20121207

REACTIONS (8)
  - Pain in extremity [None]
  - Tendon pain [None]
  - Musculoskeletal pain [None]
  - Muscle tightness [None]
  - Pain in extremity [None]
  - Dizziness [None]
  - Balance disorder [None]
  - Disturbance in attention [None]
